FAERS Safety Report 14989217 (Version 1)
Quarter: 2018Q2

REPORT INFORMATION
  Report Type: Spontaneous
  Country: DE (occurrence: DE)
  Receive Date: 20180608
  Receipt Date: 20180608
  Transmission Date: 20180711
  Serious: Yes (Hospitalization)
  Sender: FDA-Public Use
  Company Number: IND-DE-009507513-1805DEU014061

PATIENT
  Age: 60 Year
  Sex: Female

DRUGS (1)
  1. ARCOXIA [Suspect]
     Active Substance: ETORICOXIB
     Dosage: UNK, MG
     Route: 048

REACTIONS (3)
  - Angina pectoris [Unknown]
  - Hypertension [Unknown]
  - Acute respiratory failure [Unknown]
